FAERS Safety Report 8998188 (Version 1)
Quarter: 2013Q1

REPORT INFORMATION
  Report Type: Spontaneous
  Country: US (occurrence: US)
  Receive Date: 20130104
  Receipt Date: 20130104
  Transmission Date: 20140127
  Serious: Yes (Other)
  Sender: FDA-Public Use
  Company Number: US-JNJFOC-20121210156

PATIENT
  Age: 73 None
  Sex: Female
  Weight: 48.99 kg

DRUGS (9)
  1. XARELTO [Suspect]
     Indication: THROMBOSIS PROPHYLAXIS
     Route: 048
     Dates: start: 20121212, end: 20121223
  2. XARELTO [Suspect]
     Indication: THROMBOSIS
     Route: 048
     Dates: start: 20121212, end: 20121223
  3. BIOIDENTICAL HORMONES [Concomitant]
     Indication: HORMONE THERAPY
     Dosage: 2-0.5-125MG
     Route: 048
  4. COQ10 [Concomitant]
     Indication: NUTRITIONAL SUPPLEMENTATION
     Route: 065
  5. IMMUNOGLOBULIN-G [Concomitant]
     Indication: IMMUNE SYSTEM DISORDER
     Route: 042
     Dates: start: 201012
  6. IMMUNOGLOBULIN-G [Concomitant]
     Indication: CHRONIC LYMPHOCYTIC LEUKAEMIA
     Route: 042
     Dates: start: 201012
  7. ARMOUR THYROID [Concomitant]
     Indication: HYPOTHYROIDISM
     Route: 048
     Dates: start: 2009
  8. ADVAIR [Concomitant]
     Indication: ASTHMA
     Dosage: 250/50 AS NEEDED
     Route: 055
  9. ALBUTEROL [Concomitant]
     Indication: ASTHMA
     Dosage: 2.5MG-3ML
     Route: 055
     Dates: start: 2007

REACTIONS (9)
  - Oedema peripheral [Unknown]
  - Joint swelling [Unknown]
  - Localised infection [Unknown]
  - Malaise [Not Recovered/Not Resolved]
  - Weight increased [Not Recovered/Not Resolved]
  - Bronchial secretion retention [Recovered/Resolved]
  - Influenza like illness [Recovered/Resolved]
  - Pigmentation disorder [Not Recovered/Not Resolved]
  - Nervousness [Not Recovered/Not Resolved]
